FAERS Safety Report 13574973 (Version 5)
Quarter: 2017Q3

REPORT INFORMATION
  Report Type: Report from Study
  Country: US (occurrence: US)
  Receive Date: 20170523
  Receipt Date: 20170719
  Transmission Date: 20171127
  Serious: Yes (Hospitalization, Congenital Anomaly, Other)
  Sender: FDA-Public Use
  Company Number: US-TEVA-765076USA

PATIENT
  Age: 43 Year
  Sex: Male

DRUGS (7)
  1. AUSTEDO [Suspect]
     Active Substance: DEUTETRABENAZINE
     Indication: HUNTINGTON^S DISEASE
     Dosage: 72 MILLIGRAM DAILY;
     Route: 065
     Dates: start: 20170415
  2. RISPERDAL [Concomitant]
     Active Substance: RISPERIDONE
  3. DONEPEZIL. [Concomitant]
     Active Substance: DONEPEZIL
  4. AUSTEDO [Suspect]
     Active Substance: DEUTETRABENAZINE
     Dosage: 84 MILLIGRAM DAILY; FOR 1 WEEK
     Route: 065
     Dates: start: 201705, end: 201705
  5. AUSTEDO [Suspect]
     Active Substance: DEUTETRABENAZINE
     Dosage: 72 MILLIGRAM DAILY;
     Route: 065
     Dates: start: 201705
  6. AUSTEDO [Suspect]
     Active Substance: DEUTETRABENAZINE
     Dosage: 96 MILLIGRAM DAILY;
     Route: 065
     Dates: start: 20170514, end: 201705
  7. TRAZODONE [Concomitant]
     Active Substance: TRAZODONE HYDROCHLORIDE

REACTIONS (22)
  - Gait disturbance [Not Recovered/Not Resolved]
  - Fear of falling [Not Recovered/Not Resolved]
  - Grunting [Not Recovered/Not Resolved]
  - Hospitalisation [Unknown]
  - Aggression [Recovering/Resolving]
  - Anal incontinence [Not Recovered/Not Resolved]
  - Drug dose omission [Unknown]
  - Dyskinesia [Not Recovered/Not Resolved]
  - Diarrhoea [Not Recovered/Not Resolved]
  - Urinary hesitation [Not Recovered/Not Resolved]
  - Product use issue [Unknown]
  - Fall [Recovered/Resolved]
  - Restlessness [Not Recovered/Not Resolved]
  - Agitation [Not Recovered/Not Resolved]
  - Sleep disorder [Not Recovered/Not Resolved]
  - Kidney infection [Unknown]
  - Balance disorder [Not Recovered/Not Resolved]
  - Huntington^s disease [Not Recovered/Not Resolved]
  - Adverse event [Not Recovered/Not Resolved]
  - Skin abrasion [Unknown]
  - Hunger [Not Recovered/Not Resolved]
  - Urinary incontinence [Not Recovered/Not Resolved]

NARRATIVE: CASE EVENT DATE: 2017
